FAERS Safety Report 12969430 (Version 1)
Quarter: 2016Q4

REPORT INFORMATION
  Report Type: Spontaneous
  Country: US (occurrence: US)
  Receive Date: 20161123
  Receipt Date: 20161123
  Transmission Date: 20170207
  Serious: Yes (Other)
  Sender: FDA-Public Use
  Company Number: US-BAUSCH-BL-2016-028242

PATIENT
  Age: 70 Year
  Sex: Male

DRUGS (6)
  1. OXALIPLATIN. [Suspect]
     Active Substance: OXALIPLATIN
     Indication: PANCREATIC CARCINOMA METASTATIC
     Route: 065
  2. FLUOROURACIL. [Suspect]
     Active Substance: FLUOROURACIL
     Indication: PANCREATIC CARCINOMA METASTATIC
     Route: 065
  3. INSULIN [Concomitant]
     Active Substance: INSULIN NOS
     Indication: PRODUCT USED FOR UNKNOWN INDICATION
  4. POTASSIUM [Concomitant]
     Active Substance: POTASSIUM
     Indication: PRODUCT USED FOR UNKNOWN INDICATION
  5. IRINOTECAN [Suspect]
     Active Substance: IRINOTECAN
     Indication: PANCREATIC CARCINOMA METASTATIC
     Route: 065
  6. FOLINIC ACID [Suspect]
     Active Substance: LEUCOVORIN
     Indication: PANCREATIC CARCINOMA METASTATIC
     Route: 065

REACTIONS (1)
  - Pancreatic carcinoma metastatic [Unknown]
